FAERS Safety Report 7846411-3 (Version None)
Quarter: 2011Q4

REPORT INFORMATION
  Report Type: 
  Country: None (occurrence: None)
  Receive Date: 20111025
  Receipt Date: 20111025
  Transmission Date: 20120403
  Serious: Yes (Other)
  Sender: FDA-Public Use
  Company Number: None

PATIENT
  Sex: Female
  Weight: 56.699 kg

DRUGS (1)
  1. AVELOX [Suspect]
     Indication: PNEUMONIA
     Dosage: 1 TABLET
     Route: 048
     Dates: start: 20111018, end: 20111019

REACTIONS (5)
  - ANXIETY [None]
  - TENDON INJURY [None]
  - TENDON DISORDER [None]
  - DIZZINESS [None]
  - JOINT CREPITATION [None]
